FAERS Safety Report 18223346 (Version 1)
Quarter: 2020Q3

REPORT INFORMATION
  Report Type: Report from Study
  Country: CO (occurrence: CO)
  Receive Date: 20200902
  Receipt Date: 20200902
  Transmission Date: 20201103
  Serious: Yes (Other)
  Sender: FDA-Public Use
  Company Number: NVSC2020CO150225

PATIENT
  Sex: Female
  Weight: 65 kg

DRUGS (2)
  1. FEMARA [Suspect]
     Active Substance: LETROZOLE
     Indication: BREAST CANCER
     Dosage: 2.5 MG, QD
     Route: 048
     Dates: start: 20181211
  2. KISQALI [Suspect]
     Active Substance: RIBOCICLIB
     Indication: BREAST CANCER METASTATIC
     Dosage: 600 MG, QD
     Route: 048
     Dates: start: 20181211

REACTIONS (7)
  - Oropharyngeal pain [Unknown]
  - Weight decreased [Unknown]
  - Pain [Unknown]
  - Anxiety [Unknown]
  - Feeding disorder [Unknown]
  - Nervous system disorder [Unknown]
  - Depression [Unknown]
